FAERS Safety Report 8554472-1 (Version None)
Quarter: 2012Q3

REPORT INFORMATION
  Report Type: 
  Country: None (occurrence: None)
  Receive Date: 20120728
  Receipt Date: 20120728
  Transmission Date: 20120928
  Serious: Yes (Life-Threatening, Hospitalization)
  Sender: FDA-Public Use
  Company Number: None

PATIENT
  Sex: Female
  Weight: 68.0396 kg

DRUGS (1)
  1. MIRENA [Suspect]
     Indication: MENORRHAGIA
     Dosage: PERMINAT DAILY RELEASE
     Dates: start: 20070430, end: 20110520

REACTIONS (4)
  - UTERINE PAIN [None]
  - THROMBOSIS [None]
  - DEEP VEIN THROMBOSIS [None]
  - SOMATOFORM DISORDER PREGNANCY [None]
